FAERS Safety Report 7788972-9 (Version None)
Quarter: 2011Q3

REPORT INFORMATION
  Report Type: 
  Country: None (occurrence: None)
  Receive Date: 20110930
  Receipt Date: 20110918
  Transmission Date: 20111222
  Serious: Yes (Death, Other)
  Sender: FDA-Public Use
  Company Number: PHHY2011US84622

PATIENT
  Age: 14 Year
  Sex: Male

DRUGS (5)
  1. CYCLOPHOSPHAMIDE [Concomitant]
     Indication: ACUTE GRAFT VERSUS HOST DISEASE
     Dosage: UNK UKN, UNK
  2. CYCLOSPORINE [Suspect]
     Indication: PROPHYLAXIS AGAINST GRAFT VERSUS HOST DISEASE
     Dosage: UNK UKN, UNK
  3. PREDNISONE [Concomitant]
     Dosage: UNK UKN, UNK
  4. METHOTREXATE [Concomitant]
     Dosage: UNK UKN, UNK
  5. BUSULFAN [Concomitant]
     Dosage: UNK UKN, UNK

REACTIONS (4)
  - ACUTE GRAFT VERSUS HOST DISEASE IN LIVER [None]
  - CHRONIC GRAFT VERSUS HOST DISEASE [None]
  - OBLITERATIVE BRONCHIOLITIS [None]
  - ACUTE GRAFT VERSUS HOST DISEASE IN SKIN [None]
